FAERS Safety Report 16269988 (Version 2)
Quarter: 2019Q2

REPORT INFORMATION
  Report Type: Spontaneous
  Country: US (occurrence: US)
  Receive Date: 20190503
  Receipt Date: 20190605
  Transmission Date: 20190711
  Serious: Yes (Other)
  Sender: FDA-Public Use
  Company Number: US-BAYER-2019-085638

PATIENT
  Sex: Female

DRUGS (1)
  1. MENOSTAR [Suspect]
     Active Substance: ESTRADIOL
     Dosage: UNK
     Route: 062
     Dates: start: 20190411

REACTIONS (6)
  - Hypoaesthesia [None]
  - Product adhesion issue [None]
  - Hemiplegic migraine [None]
  - Aphasia [None]
  - Hemiplegia [None]
  - Wrong technique in product usage process [None]

NARRATIVE: CASE EVENT DATE: 2019
